FAERS Safety Report 24183369 (Version 1)
Quarter: 2024Q3

REPORT INFORMATION
  Report Type: Spontaneous
  Country: US (occurrence: None)
  Receive Date: 20240806
  Receipt Date: 20240806
  Transmission Date: 20241016
  Serious: Yes (Disabling)
  Sender: Public
  Company Number: None

PATIENT
  Age: 38 Year
  Sex: Female
  Weight: 74.25 kg

DRUGS (4)
  1. ARISTADA [Suspect]
     Active Substance: ARIPIPRAZOLE LAUROXIL
     Indication: Bipolar disorder
     Dosage: OTHER FREQUENCY : EVERY 2 MONTHS;?
     Route: 008
     Dates: start: 20221206, end: 20240806
  2. INGREZZA [Concomitant]
     Active Substance: VALBENAZINE
  3. LEXAPRO [Concomitant]
     Active Substance: ESCITALOPRAM OXALATE
  4. TRAZODONE [Concomitant]
     Active Substance: TRAZODONE HYDROCHLORIDE

REACTIONS (3)
  - Eye movement disorder [None]
  - Muscle twitching [None]
  - Emotional distress [None]

NARRATIVE: CASE EVENT DATE: 20230310
